FAERS Safety Report 7588656-6 (Version None)
Quarter: 2011Q3

REPORT INFORMATION
  Report Type: 
  Country: None (occurrence: None)
  Receive Date: 20110705
  Receipt Date: 20110624
  Transmission Date: 20111222
  Serious: No
  Sender: FDA-Public Use
  Company Number: JP-SANOFI-AVENTIS-2011SA040207

PATIENT
  Age: 38 Year
  Sex: Female

DRUGS (6)
  1. ARAVA [Suspect]
     Indication: RHEUMATOID ARTHRITIS
     Route: 048
     Dates: start: 20090410, end: 20090412
  2. ARAVA [Suspect]
     Route: 048
     Dates: start: 20091117, end: 20101021
  3. PROGRAF [Concomitant]
     Route: 048
     Dates: start: 20100212, end: 20101021
  4. ARAVA [Suspect]
     Route: 048
     Dates: start: 20090413, end: 20091116
  5. QUESTRAN [Suspect]
     Indication: DRUG DETOXIFICATION
     Route: 048
     Dates: start: 20101027, end: 20101029
  6. MOBIC [Concomitant]
     Route: 048
     Dates: start: 20080911, end: 20101021

REACTIONS (1)
  - MATERNAL EXPOSURE DURING PREGNANCY [None]
